FAERS Safety Report 10463340 (Version 2)
Quarter: 2014Q4

REPORT INFORMATION
  Report Type: Spontaneous
  Country: VN (occurrence: VN)
  Receive Date: 20140919
  Receipt Date: 20141030
  Transmission Date: 20150528
  Serious: Yes (Other)
  Sender: FDA-Public Use
  Company Number: VN-ROCHE-1463235

PATIENT
  Sex: Male

DRUGS (1)
  1. ACTEMRA [Suspect]
     Active Substance: TOCILIZUMAB
     Indication: RHEUMATOID ARTHRITIS
     Route: 041
     Dates: start: 201404

REACTIONS (3)
  - Haemorrhage subcutaneous [Recovering/Resolving]
  - White blood cell count increased [Unknown]
  - White blood cell count decreased [Unknown]
